FAERS Safety Report 9391351 (Version 1)
Quarter: 2013Q3

REPORT INFORMATION
  Report Type: Report from Study
  Country: JP (occurrence: JP)
  Receive Date: 20130709
  Receipt Date: 20130709
  Transmission Date: 20140515
  Serious: Yes (Hospitalization)
  Sender: FDA-Public Use
  Company Number: JP-B.I. PHARMACEUTICALS,INC./RIDGEFIELD-2013-BI-19548GD

PATIENT
  Age: 76 Year
  Sex: Female
  Weight: 48 kg

DRUGS (15)
  1. PRADAXA [Suspect]
     Indication: ATRIAL FIBRILLATION
     Dosage: 220 MG
     Route: 048
     Dates: start: 20110525, end: 20120507
  2. PRADAXA [Suspect]
     Dosage: 220 MG
     Route: 048
     Dates: start: 20120522
  3. BAYASPIRIN [Suspect]
     Indication: CEREBRAL INFARCTION
     Dosage: 100 MG
     Route: 048
     Dates: end: 20120508
  4. ARTIST [Concomitant]
     Indication: CARDIAC FAILURE
     Dosage: 5 MG
     Route: 048
  5. DOMPERIDONE [Concomitant]
     Dosage: 10 MG
     Route: 048
  6. ALDACTONE A [Concomitant]
     Indication: CARDIAC FAILURE
     Dosage: 25 MG
     Route: 048
  7. ARICEPT D [Concomitant]
     Indication: DEMENTIA ALZHEIMER^S TYPE
     Dosage: 5 MG
     Route: 048
  8. JANUVIA [Concomitant]
     Indication: DIABETES MELLITUS
     Dosage: 50 MG
     Route: 048
  9. MEDET [Concomitant]
     Indication: DIABETES MELLITUS
     Dosage: 500 MG
     Route: 048
  10. TANATRIL [Concomitant]
     Indication: HYPERTENSION
     Dosage: 5 MG
     Route: 048
  11. LANIRAPID [Concomitant]
     Indication: CARDIAC FAILURE
     Dosage: 0.1 MG
     Route: 048
  12. CEPHADOL [Concomitant]
     Dosage: 50 MG
     Route: 048
  13. FUROSEMIDE [Concomitant]
     Indication: CARDIAC FAILURE
     Dosage: 20 MG
     Route: 048
  14. LIPITOR [Concomitant]
     Dosage: 10 MG
     Route: 048
  15. AMLODIN [Concomitant]
     Indication: HYPERTENSION
     Dosage: 5 MG
     Route: 048

REACTIONS (5)
  - Upper gastrointestinal haemorrhage [Not Recovered/Not Resolved]
  - Cardiac failure [Unknown]
  - Renal impairment [Unknown]
  - Activated partial thromboplastin time prolonged [Unknown]
  - Gastritis erosive [Unknown]
